FAERS Safety Report 8349672-X (Version None)
Quarter: 2012Q2

REPORT INFORMATION
  Report Type: 
  Country: None (occurrence: None)
  Receive Date: 20120510
  Receipt Date: 20120430
  Transmission Date: 20120825
  Serious: Yes (Hospitalization)
  Sender: FDA-Public Use
  Company Number: US-NOVOPROD-350567

PATIENT
  Sex: Female

DRUGS (1)
  1. VAGIFEM [Suspect]
     Indication: VULVOVAGINAL DRYNESS
     Dosage: 10 MCG, TWICE A WEEK
     Route: 067

REACTIONS (1)
  - PULMONARY EMBOLISM [None]
